FAERS Safety Report 4363807-5 (Version None)
Quarter: 2004Q2

REPORT INFORMATION
  Report Type: 
  Country: None (occurrence: None)
  Receive Date: 20040521
  Receipt Date: 20040512
  Transmission Date: 20050107
  Serious: Yes (Death, Hospitalization, Other)
  Sender: FDA-Public Use
  Company Number: 2004210216JP

PATIENT
  Age: 74 Year
  Sex: Male
  Weight: 55 kg

DRUGS (10)
  1. AZULFIDINE EN-TABS [Suspect]
     Indication: MUSCULOSKELETAL PAIN
     Dosage: SEE IMAGE
     Route: 048
     Dates: start: 20040406, end: 20040414
  2. AZULFIDINE EN-TABS [Suspect]
     Indication: MUSCULOSKELETAL PAIN
     Dosage: SEE IMAGE
     Route: 048
     Dates: start: 20040219
  3. PREDDONINE [Concomitant]
  4. LOXONIN (LOXOPROFEN SODIUM) [Concomitant]
  5. ASPIRIN ^ABYER: [Concomitant]
  6. TRICHLORMETHIAZIDE [Concomitant]
  7. ALLOZYM [Concomitant]
  8. APLACE (TROXIPIDE) [Concomitant]
  9. DEPAS (ETIZOLAM) [Concomitant]
  10. MECOBALAMIN (MECOBALAMIN) [Concomitant]

REACTIONS (10)
  - ATRIOVENTRICULAR BLOCK [None]
  - BLOOD PRESSURE ABNORMAL [None]
  - DRUG INEFFECTIVE [None]
  - DYSPNOEA EXERTIONAL [None]
  - HAEMOPTYSIS [None]
  - HEART RATE ABNORMAL [None]
  - INTERSTITIAL LUNG DISEASE [None]
  - LEUKOCYTOSIS [None]
  - PNEUMONIA BACTERIAL [None]
  - PULMONARY FIBROSIS [None]
